FAERS Safety Report 19143491 (Version 1)
Quarter: 2021Q2

REPORT INFORMATION
  Report Type: Spontaneous
  Country: CN (occurrence: CN)
  Receive Date: 20210415
  Receipt Date: 20210415
  Transmission Date: 20210717
  Serious: Yes (Other)
  Sender: FDA-Public Use
  Company Number: CN-DSJP-DSJ-2021-111363AA

PATIENT
  Age: 65 Year
  Sex: Male
  Weight: 65 kg

DRUGS (4)
  1. BAI LING [Concomitant]
     Indication: RENAL FUNCTION TEST ABNORMAL
     Dosage: 2 G, TID
     Route: 048
     Dates: start: 20210101, end: 20210409
  2. FOLIC ACID. [Concomitant]
     Active Substance: FOLIC ACID
     Indication: HYPERHOMOCYSTEINAEMIA
     Dosage: 0.8 MG, QD
     Route: 048
     Dates: start: 20210101, end: 20210409
  3. ATORVASTATIN CALCIUM. [Concomitant]
     Active Substance: ATORVASTATIN CALCIUM
     Indication: HYPERLIPIDAEMIA
     Dosage: 20 MG, QD
     Route: 048
     Dates: start: 20210101, end: 20210409
  4. OLMESARTAN MEDOXOMIL HYDROCHLOROTHIAZIDE [Suspect]
     Active Substance: HYDROCHLOROTHIAZIDE\OLMESARTAN MEDOXOMIL
     Indication: HYPERTENSION
     Dosage: 20/12.5MG, DAY
     Route: 048
     Dates: start: 20210129, end: 20210325

REACTIONS (3)
  - Rash [Recovering/Resolving]
  - Pruritus [Recovering/Resolving]
  - Drug eruption [Recovering/Resolving]

NARRATIVE: CASE EVENT DATE: 20210203
